FAERS Safety Report 20984789 (Version 1)
Quarter: 2022Q2

REPORT INFORMATION
  Report Type: Spontaneous
  Country: US (occurrence: US)
  Receive Date: 20220621
  Receipt Date: 20220621
  Transmission Date: 20220721
  Serious: Yes (Other)
  Sender: FDA-Public Use
  Company Number: US-UNITED THERAPEUTICS-UNT-2022-003772

PATIENT
  Age: 56 Year
  Sex: Male
  Weight: 90.703 kg

DRUGS (5)
  1. TYVASO [Suspect]
     Active Substance: TREPROSTINIL
     Indication: Pulmonary arterial hypertension
     Dosage: UNK
     Dates: start: 20211123
  2. TYVASO [Suspect]
     Active Substance: TREPROSTINIL
     Dosage: 18-72 ?G, QID
  3. TYVASO [Suspect]
     Active Substance: TREPROSTINIL
     Dosage: UNK
     Dates: end: 202204
  4. SILDENAFIL CITRATE [Concomitant]
     Active Substance: SILDENAFIL CITRATE
     Indication: Product used for unknown indication
     Dosage: UNK
     Route: 065
  5. OPSUMIT [Concomitant]
     Active Substance: MACITENTAN
     Indication: Product used for unknown indication
     Dosage: UNK
     Route: 065

REACTIONS (17)
  - Pulmonary oedema [Unknown]
  - Pleural effusion [Unknown]
  - Hepatic cancer [Unknown]
  - Fall [Recovered/Resolved with Sequelae]
  - Rib fracture [Recovering/Resolving]
  - Lumbar vertebral fracture [Unknown]
  - Cough [Unknown]
  - Decreased appetite [Unknown]
  - Throat irritation [Unknown]
  - Rhinorrhoea [Unknown]
  - Respiratory tract congestion [Unknown]
  - Hypogeusia [Unknown]
  - Vomiting [Unknown]
  - Dyspnoea [Unknown]
  - Weight decreased [Unknown]
  - Wrong technique in product usage process [Unknown]
  - Therapy interrupted [Unknown]

NARRATIVE: CASE EVENT DATE: 20220130
